FAERS Safety Report 8971492 (Version 1)
Quarter: 2012Q4

REPORT INFORMATION
  Report Type: 
  Country: FR (occurrence: FR)
  Receive Date: 20121217
  Receipt Date: 20121217
  Transmission Date: 20130627
  Serious: Yes (Other)
  Sender: FDA-Public Use
  Company Number: FR-UCBSA-073011

PATIENT
  Age: 34 Year
  Sex: Female

DRUGS (1)
  1. KEPPRA [Suspect]
     Indication: JUVENILE MYOCLONIC EPILEPSY
     Route: 048
     Dates: start: 200710

REACTIONS (2)
  - Abortion spontaneous [Recovered/Resolved]
  - Pregnancy [Recovered/Resolved]
